FAERS Safety Report 13460222 (Version 1)
Quarter: 2017Q2

REPORT INFORMATION
  Report Type: Spontaneous
  Country: RO (occurrence: RO)
  Receive Date: 20170420
  Receipt Date: 20170420
  Transmission Date: 20170830
  Serious: Yes (Hospitalization, Congenital Anomaly, Other)
  Sender: FDA-Public Use
  Company Number: RO-LUPIN PHARMACEUTICALS INC.-2017-01847

PATIENT

DRUGS (1)
  1. MISOPROSTOL. [Suspect]
     Active Substance: MISOPROSTOL
     Indication: LABOUR INDUCTION
     Dosage: UNK
     Route: 064

REACTIONS (7)
  - Hypokinesia [Unknown]
  - Quadriplegia [Unknown]
  - Weight decreased [Unknown]
  - Psychomotor retardation [Unknown]
  - Cerebral palsy [Unknown]
  - Foetal exposure during pregnancy [Unknown]
  - Encephalopathy neonatal [Unknown]
